FAERS Safety Report 22085967 (Version 1)
Quarter: 2023Q1

REPORT INFORMATION
  Report Type: Report from Study
  Country: ES (occurrence: ES)
  Receive Date: 20230310
  Receipt Date: 20230310
  Transmission Date: 20230417
  Serious: Yes (Hospitalization)
  Sender: FDA-Public Use
  Company Number: ES-BAYER-2023A012989

PATIENT
  Age: 40 Year
  Sex: Female

DRUGS (1)
  1. KYLEENA [Suspect]
     Active Substance: LEVONORGESTREL
     Indication: Contraception
     Dosage: 17.5?G/DAY
     Route: 015
     Dates: start: 20220928

REACTIONS (4)
  - Pelvic inflammatory disease [Recovered/Resolved]
  - Abdominal pain lower [Recovered/Resolved]
  - Chlamydia test positive [Recovered/Resolved]
  - Gardnerella test positive [Recovered/Resolved]

NARRATIVE: CASE EVENT DATE: 20221001
